FAERS Safety Report 13982919 (Version 1)
Quarter: 2017Q3

REPORT INFORMATION
  Report Type: Spontaneous
  Country: FR (occurrence: FR)
  Receive Date: 20170918
  Receipt Date: 20170918
  Transmission Date: 20171128
  Serious: Yes (Other)
  Sender: FDA-Public Use
  Company Number: FR-MERCK KGAA-2026639

PATIENT
  Age: 52 Year
  Sex: Female

DRUGS (1)
  1. NOVOTHYROX [Suspect]
     Active Substance: LEVOTHYROXINE SODIUM
     Indication: HYPOTHYROIDISM
     Route: 048
     Dates: start: 20101101

REACTIONS (4)
  - Palpitations [Not Recovered/Not Resolved]
  - Breast pain [Not Recovered/Not Resolved]
  - Nervousness [Not Recovered/Not Resolved]
  - Product taste abnormal [None]

NARRATIVE: CASE EVENT DATE: 20170901
